FAERS Safety Report 15251051 (Version 2)
Quarter: 2018Q3

REPORT INFORMATION
  Report Type: Spontaneous
  Country: US (occurrence: US)
  Receive Date: 20180807
  Receipt Date: 20180823
  Transmission Date: 20181010
  Serious: Yes (Other)
  Sender: FDA-Public Use
  Company Number: US-TEVA-2018-US-938917

PATIENT
  Age: 72 Year
  Sex: Female

DRUGS (1)
  1. DOXORUBICIN [Suspect]
     Active Substance: DOXORUBICIN
     Indication: TRANSITIONAL CELL CARCINOMA
     Route: 065

REACTIONS (7)
  - Adult failure to thrive [Unknown]
  - Fatigue [Unknown]
  - Hypocalcaemia [Not Recovered/Not Resolved]
  - Pancytopenia [Unknown]
  - Diarrhoea [Unknown]
  - Nausea [Unknown]
  - Hyperparathyroidism secondary [Unknown]
